FAERS Safety Report 8495088-5 (Version None)
Quarter: 2012Q3

REPORT INFORMATION
  Report Type: 
  Country: None (occurrence: None)
  Receive Date: 20120709
  Receipt Date: 20120703
  Transmission Date: 20120928
  Serious: Yes (Other)
  Sender: FDA-Public Use
  Company Number: PHHY2012DE057753

PATIENT
  Age: 63 Year

DRUGS (3)
  1. TASIGNA [Suspect]
     Dosage: 400 MG, BID
     Route: 048
  2. PONATINIB [Concomitant]
  3. DASATINIB [Concomitant]

REACTIONS (3)
  - ANGINA PECTORIS [None]
  - ACUTE CORONARY SYNDROME [None]
  - ELECTROCARDIOGRAM QT PROLONGED [None]
